FAERS Safety Report 16138739 (Version 1)
Quarter: 2019Q2

REPORT INFORMATION
  Report Type: Report from Study
  Country: None (occurrence: GB)
  Receive Date: 20190401
  Receipt Date: 20190401
  Transmission Date: 20190711
  Serious: Yes (Other)
  Sender: FDA-Public Use
  Company Number: GB-ABBVIE-19K-167-2726798-00

PATIENT
  Age: 59 Year
  Sex: Male

DRUGS (1)
  1. HUMIRA [Suspect]
     Active Substance: ADALIMUMAB
     Indication: STILL^S DISEASE
     Route: 058
     Dates: start: 20080903, end: 20090215

REACTIONS (3)
  - Lymphadenopathy [Unknown]
  - Lung disorder [Unknown]
  - Lymphoma [Unknown]

NARRATIVE: CASE EVENT DATE: 20181012
